FAERS Safety Report 4864214-9 (Version None)
Quarter: 2005Q4

REPORT INFORMATION
  Report Type: 
  Country: None (occurrence: None)
  Receive Date: 20051220
  Receipt Date: 20051220
  Transmission Date: 20060501
  Serious: Yes (Other)
  Sender: FDA-Public Use
  Company Number: None

PATIENT
  Age: 53 Year
  Sex: Female
  Weight: 77.1115 kg

DRUGS (4)
  1. EFFEXOR XR [Suspect]
     Indication: ANXIETY
     Dosage: 75MG DAILY PO
     Route: 048
     Dates: start: 20050410, end: 20050910
  2. EFFEXOR XR [Suspect]
     Indication: DEPRESSION
     Dosage: 75MG DAILY PO
     Route: 048
     Dates: start: 20050410, end: 20050910
  3. EFFEXOR XR [Suspect]
     Indication: ANXIETY
     Dosage: 37.5MG  DAILY PO
     Route: 048
     Dates: start: 20050510, end: 20051219
  4. EFFEXOR XR [Suspect]
     Indication: DEPRESSION
     Dosage: 37.5MG  DAILY PO
     Route: 048
     Dates: start: 20050510, end: 20051219

REACTIONS (3)
  - HALLUCINATION [None]
  - HALLUCINATION, AUDITORY [None]
  - NIGHTMARE [None]
